FAERS Safety Report 4488873-8 (Version None)
Quarter: 2004Q3

REPORT INFORMATION
  Report Type: 
  Country: None (occurrence: None)
  Receive Date: 20040921
  Receipt Date: 20040121
  Transmission Date: 20050211
  Serious: Yes (Death)
  Sender: FDA-Public Use
  Company Number: 163-20785-04010526

PATIENT
  Age: 9 Year
  Sex: Male

DRUGS (3)
  1. THALOMID [Suspect]
     Indication: ACUTE MYELOID LEUKAEMIA
     Dosage: 100 MG, DAILY, ORAL; 50 MG, DAILY, ORAL
     Route: 048
     Dates: start: 20031229, end: 20040104
  2. THALOMID [Suspect]
     Dosage: 50 MG, DAILY, ORAL
     Dates: start: 20031220, end: 20031228
  3. THALOMID [Suspect]
     Dosage: 50 MG, DAILY, ORAL
     Route: 048
     Dates: start: 20031205, end: 20031208

REACTIONS (2)
  - DEATH [None]
  - DISEASE PROGRESSION [None]
